FAERS Safety Report 8778056 (Version 2)
Quarter: 2012Q4

REPORT INFORMATION
  Report Type: 
  Country: US (occurrence: US)
  Receive Date: 20120911
  Receipt Date: 20121010
  Transmission Date: 20130627
  Serious: Yes (Other)
  Sender: FDA-Public Use
  Company Number: US-PFIZER INC-2012220272

PATIENT
  Age: 73 Year
  Sex: Female
  Weight: 63.95 kg

DRUGS (9)
  1. SUTENT [Suspect]
     Indication: RENAL CELL CARCINOMA
     Dosage: 50 mg, daily
     Dates: start: 20120814, end: 20120822
  2. LISINOPRIL [Concomitant]
     Indication: HYPERTENSION
     Dosage: 20 mg, UNK
     Route: 048
  3. FLAXSEED OIL [Concomitant]
     Dosage: UNK, QD
  4. ZINC [Concomitant]
     Dosage: 50 mg, UNK
     Route: 048
  5. VITAMIN D3 [Concomitant]
     Dosage: 2000 units capsules QD
     Route: 048
  6. NORVASC [Concomitant]
     Dosage: 5 mg tablet, 1x/day
     Dates: start: 20120823, end: 20120902
  7. HYDROCHLOROTHIAZIDE [Concomitant]
     Dosage: 25 mg, 1x/day
     Route: 048
  8. LEVOTHYROXINE [Concomitant]
     Dosage: 100 ug, 1x/day
     Route: 048
  9. IRON SULFATE [Concomitant]
     Dosage: mg (65 mg iron) Tab, 2 Tablet@), QD
     Route: 048

REACTIONS (13)
  - Hypertension [Not Recovered/Not Resolved]
  - Cough [Not Recovered/Not Resolved]
  - Constipation [Not Recovered/Not Resolved]
  - Fatigue [Unknown]
  - Vision blurred [Unknown]
  - Dizziness [Unknown]
  - Nausea [Unknown]
  - Diarrhoea [Unknown]
  - Gastrooesophageal reflux disease [Unknown]
  - Asthenia [Unknown]
  - Dyspepsia [Unknown]
  - Headache [Unknown]
  - Pain in extremity [Unknown]
